FAERS Safety Report 15826602 (Version 2)
Quarter: 2019Q3

REPORT INFORMATION
  Report Type: Spontaneous
  Country: US (occurrence: US)
  Receive Date: 20190115
  Receipt Date: 20190719
  Transmission Date: 20191004
  Serious: No
  Sender: FDA-Public Use
  Company Number: US-PFIZER INC-2019019557

PATIENT
  Age: 66 Year
  Sex: Female

DRUGS (1)
  1. XELJANZ XR [Suspect]
     Active Substance: TOFACITINIB CITRATE
     Dosage: 11 MG, UNK

REACTIONS (10)
  - Back pain [Unknown]
  - Tremor [Unknown]
  - Bronchitis [Unknown]
  - Musculoskeletal pain [Unknown]
  - Dystonic tremor [Unknown]
  - Back disorder [Unknown]
  - Anxiety [Unknown]
  - Gait disturbance [Unknown]
  - Depression [Unknown]
  - Pain [Unknown]
